FAERS Safety Report 13805172 (Version 1)
Quarter: 2017Q3

REPORT INFORMATION
  Report Type: Spontaneous
  Country: US (occurrence: US)
  Receive Date: 20170728
  Receipt Date: 20170728
  Transmission Date: 20171127
  Serious: No
  Sender: FDA-Public Use
  Company Number: US-PFIZER INC-2017326901

PATIENT
  Sex: Female

DRUGS (2)
  1. ADVIL [Suspect]
     Active Substance: IBUPROFEN
     Indication: MUSCLE SPASMS
     Dosage: TWO TABLETS, NORMAL STRENGTH
     Dates: start: 20170726
  2. DOXYCYCLINE. [Concomitant]
     Active Substance: DOXYCYCLINE
     Dosage: ONE PILL IN THE MORNING AND ONE IN THE EVENING

REACTIONS (4)
  - Pharyngeal paraesthesia [Not Recovered/Not Resolved]
  - Dysphagia [Unknown]
  - Intentional product misuse [Unknown]
  - Throat irritation [Not Recovered/Not Resolved]

NARRATIVE: CASE EVENT DATE: 20170726
